FAERS Safety Report 7675954-0 (Version None)
Quarter: 2011Q3

REPORT INFORMATION
  Report Type: 
  Country: None (occurrence: None)
  Receive Date: 20110811
  Receipt Date: 20110809
  Transmission Date: 20111222
  Serious: Yes (Hospitalization)
  Sender: FDA-Public Use
  Company Number: US-BIOGENIDEC-2011BI000387

PATIENT
  Age: 59 Year
  Sex: Female

DRUGS (4)
  1. ZANAFLEX [Concomitant]
  2. TYSABRI [Suspect]
     Indication: MULTIPLE SCLEROSIS
     Route: 042
     Dates: start: 20060907
  3. AVONEX [Concomitant]
     Indication: MULTIPLE SCLEROSIS
     Route: 030
  4. BACLOFEN [Concomitant]

REACTIONS (1)
  - LETHARGY [None]
